FAERS Safety Report 22379890 (Version 8)
Quarter: 2023Q4

REPORT INFORMATION
  Report Type: Report from Study
  Country: IL (occurrence: None)
  Receive Date: 20230529
  Receipt Date: 20231117
  Transmission Date: 20240109
  Serious: Yes (Hospitalization)
  Sender: FDA-Public Use
  Company Number: IL-ROCHE-3356049

PATIENT
  Age: 82 Year
  Sex: Male
  Weight: 75 kg

DRUGS (76)
  1. MOSUNETUZUMAB [Suspect]
     Active Substance: MOSUNETUZUMAB
     Indication: Diffuse large B-cell lymphoma
     Dosage: ON 09/NOV/2022 2:15 PM, HE RECEIVED MOST RECENT DOSE 45 MG OF MOSUNETUZUMAB PRIOR TO AE. ON 12/MAR/2
     Route: 058
     Dates: start: 20220906
  2. POLATUZUMAB VEDOTIN [Suspect]
     Active Substance: POLATUZUMAB VEDOTIN
     Indication: Diffuse large B-cell lymphoma
     Dosage: ON 09/NOV/2022, HE RECEIVED MOST RECENT DOSE 135 MG OF POLATUZUMAB VEDOTIN PRIOR TO AE ?ON 22/JAN/20
     Route: 042
     Dates: start: 20220906
  3. TAMSULOSIN HYDROCHLORIDE [Concomitant]
     Active Substance: TAMSULOSIN HYDROCHLORIDE
     Route: 048
     Dates: start: 20220704
  4. RAMIPRIL [Concomitant]
     Active Substance: RAMIPRIL
     Route: 048
     Dates: start: 2012
  5. PLAVIX [Concomitant]
     Active Substance: CLOPIDOGREL BISULFATE
     Route: 048
     Dates: start: 202205
  6. LIPITOR [Concomitant]
     Active Substance: ATORVASTATIN CALCIUM
     Route: 048
     Dates: start: 2021
  7. CARTIA (ISRAEL) [Concomitant]
     Route: 048
     Dates: start: 2010
  8. MAGNOX [Concomitant]
     Route: 048
     Dates: start: 20220906
  9. DERMAGRAN B [Concomitant]
     Dosage: 1 OTHER
     Route: 061
     Dates: start: 20220928
  10. SILDENAFIL [Concomitant]
     Active Substance: SILDENAFIL
     Route: 048
     Dates: start: 2019
  11. NEUPOGEN [Concomitant]
     Active Substance: FILGRASTIM
     Route: 058
     Dates: start: 20230212, end: 20230509
  12. NEUPOGEN [Concomitant]
     Active Substance: FILGRASTIM
     Route: 048
     Dates: start: 20230921, end: 20230928
  13. BILASTINE [Concomitant]
     Active Substance: BILASTINE
     Route: 048
     Dates: start: 20230305, end: 20230521
  14. EURAX [Concomitant]
     Active Substance: CROTAMITON
     Dosage: 1 OTHER
     Route: 061
     Dates: start: 20230413, end: 20230521
  15. CHLORPHENIRAMINE MALEATE [Concomitant]
     Active Substance: CHLORPHENIRAMINE MALEATE
     Route: 048
     Dates: start: 20230413, end: 20230521
  16. BICALUTAMIDE [Concomitant]
     Active Substance: BICALUTAMIDE
     Route: 048
     Dates: start: 20230430
  17. BICALUTAMIDE [Concomitant]
     Active Substance: BICALUTAMIDE
     Dosage: 1 OTHER
     Route: 061
     Dates: start: 20230516, end: 20230521
  18. MAXITROL [Concomitant]
     Active Substance: DEXAMETHASONE\NEOMYCIN SULFATE\POLYMYXIN B SULFATE
     Dates: start: 20230516, end: 20230521
  19. AQUA CREAM [Concomitant]
     Dosage: 1 OTHER
     Route: 061
     Dates: start: 20221226, end: 20230314
  20. AQUA CREAM [Concomitant]
     Dosage: 1 OTHER
     Route: 061
     Dates: start: 20230521
  21. AQUA CREAM [Concomitant]
     Dosage: 1 OTHER
     Route: 061
     Dates: start: 20221220, end: 20221224
  22. AQUA CREAM [Concomitant]
     Dosage: 1 OTHER
     Route: 061
     Dates: start: 20230521, end: 20230521
  23. AQUA CREAM [Concomitant]
     Dosage: 1 OTHER
     Route: 061
     Dates: start: 20230522, end: 20230527
  24. AQUA CREAM [Concomitant]
     Dosage: 1 OTHER
     Route: 061
     Dates: start: 20230528
  25. AVILAC [Concomitant]
     Route: 048
     Dates: start: 20230522, end: 20230522
  26. CALTRATE WITH VITAMIN D [Concomitant]
     Active Substance: CALCIUM CARBONATE\CHOLECALCIFEROL
     Route: 048
     Dates: start: 20230522, end: 20230522
  27. CALTRATE WITH VITAMIN D [Concomitant]
     Active Substance: CALCIUM CARBONATE\CHOLECALCIFEROL
     Route: 048
     Dates: start: 20230524, end: 20230602
  28. CLOBETASOL [Concomitant]
     Active Substance: CLOBETASOL
     Dosage: 1 OTHER
     Route: 061
     Dates: start: 20230521, end: 20230521
  29. CLOBETASOL [Concomitant]
     Active Substance: CLOBETASOL
     Dosage: 1 OTHER
     Route: 061
     Dates: start: 20230522, end: 20230525
  30. FOLIC ACID [Concomitant]
     Active Substance: FOLIC ACID
     Route: 048
     Dates: start: 20230522, end: 20230630
  31. OMEPRAZOLE [Concomitant]
     Active Substance: OMEPRAZOLE
     Route: 048
     Dates: start: 20230522, end: 20230522
  32. OMEPRAZOLE [Concomitant]
     Active Substance: OMEPRAZOLE
     Route: 048
     Dates: start: 20230524, end: 20230602
  33. PROMETHAZINE [Concomitant]
     Active Substance: PROMETHAZINE HYDROCHLORIDE
     Route: 048
     Dates: start: 20230522
  34. PROMETHAZINE [Concomitant]
     Active Substance: PROMETHAZINE HYDROCHLORIDE
     Route: 048
     Dates: start: 20221220, end: 20221220
  35. PROMETHAZINE [Concomitant]
     Active Substance: PROMETHAZINE HYDROCHLORIDE
     Route: 048
     Dates: start: 20230122, end: 20230122
  36. PROMETHAZINE [Concomitant]
     Active Substance: PROMETHAZINE HYDROCHLORIDE
     Route: 048
     Dates: start: 20230219, end: 20230219
  37. PROMETHAZINE [Concomitant]
     Active Substance: PROMETHAZINE HYDROCHLORIDE
     Route: 048
     Dates: start: 20230312, end: 20230312
  38. DEXAMETHASONE [Concomitant]
     Active Substance: DEXAMETHASONE
     Route: 042
     Dates: start: 20221109, end: 20221109
  39. DEXAMETHASONE [Concomitant]
     Active Substance: DEXAMETHASONE
     Route: 042
     Dates: start: 20221220, end: 20221220
  40. DEXAMETHASONE [Concomitant]
     Active Substance: DEXAMETHASONE
     Route: 042
     Dates: start: 20230122, end: 20230122
  41. DEXAMETHASONE [Concomitant]
     Active Substance: DEXAMETHASONE
     Route: 042
     Dates: start: 20230312, end: 20230312
  42. DEXAMETHASONE [Concomitant]
     Active Substance: DEXAMETHASONE
     Route: 058
     Dates: start: 20230219, end: 20230219
  43. ACETAMINOPHEN [Concomitant]
     Active Substance: ACETAMINOPHEN
     Route: 048
     Dates: start: 20221109, end: 20221109
  44. ACETAMINOPHEN [Concomitant]
     Active Substance: ACETAMINOPHEN
     Route: 048
     Dates: start: 20221220, end: 20221220
  45. ACETAMINOPHEN [Concomitant]
     Active Substance: ACETAMINOPHEN
     Route: 048
     Dates: start: 20230122, end: 20230122
  46. ACETAMINOPHEN [Concomitant]
     Active Substance: ACETAMINOPHEN
     Route: 048
     Dates: start: 20230219, end: 20230219
  47. ACETAMINOPHEN [Concomitant]
     Active Substance: ACETAMINOPHEN
     Route: 048
     Dates: start: 20230312, end: 20230312
  48. PAXLOVID [Concomitant]
     Active Substance: NIRMATRELVIR\RITONAVIR
     Route: 048
     Dates: start: 20221130, end: 20221204
  49. FEXOFENADINE [Concomitant]
     Active Substance: FEXOFENADINE HYDROCHLORIDE
     Route: 048
     Dates: start: 20221130, end: 20230101
  50. KETOSPRAY [Concomitant]
     Dosage: 1 SPRAY
     Route: 061
     Dates: start: 20230107, end: 20230111
  51. DESLORATADINE [Concomitant]
     Active Substance: DESLORATADINE
     Route: 048
     Dates: start: 20230109, end: 20230314
  52. MOMETASONE FUROATE [Concomitant]
     Active Substance: MOMETASONE FUROATE
     Dosage: 1 OTHER
     Route: 061
     Dates: start: 20230305, end: 20230413
  53. PROMETHAZINE [Concomitant]
     Active Substance: PROMETHAZINE HYDROCHLORIDE
     Route: 048
     Dates: start: 20230521, end: 20230525
  54. PROMETHAZINE [Concomitant]
     Active Substance: PROMETHAZINE HYDROCHLORIDE
     Route: 048
     Dates: start: 20221220, end: 20221220
  55. PROMETHAZINE [Concomitant]
     Active Substance: PROMETHAZINE HYDROCHLORIDE
     Route: 048
     Dates: start: 20230122, end: 20230122
  56. PROMETHAZINE [Concomitant]
     Active Substance: PROMETHAZINE HYDROCHLORIDE
     Route: 048
     Dates: start: 20230219, end: 20230219
  57. PROMETHAZINE [Concomitant]
     Active Substance: PROMETHAZINE HYDROCHLORIDE
     Route: 048
     Dates: start: 20230312, end: 20230312
  58. LORATADINE [Concomitant]
     Active Substance: LORATADINE
     Route: 048
     Dates: start: 20230521, end: 20230521
  59. LORATADINE [Concomitant]
     Active Substance: LORATADINE
     Route: 048
     Dates: start: 20230522, end: 20230523
  60. LORATADINE [Concomitant]
     Active Substance: LORATADINE
     Route: 048
     Dates: start: 20230524, end: 20230524
  61. GILEX [Concomitant]
     Route: 048
     Dates: start: 20230524, end: 20230527
  62. GILEX [Concomitant]
     Route: 048
     Dates: start: 20230528
  63. PREDNISONE [Concomitant]
     Active Substance: PREDNISONE
     Route: 048
     Dates: start: 20230524, end: 20230527
  64. PREDNISONE [Concomitant]
     Active Substance: PREDNISONE
     Route: 048
     Dates: start: 20230528, end: 20230530
  65. PREDNISONE [Concomitant]
     Active Substance: PREDNISONE
     Route: 048
     Dates: start: 20230531, end: 20230602
  66. CHLORHEXIDINE GLUCONATE [Concomitant]
     Active Substance: CHLORHEXIDINE GLUCONATE
     Route: 061
     Dates: start: 20230523, end: 20230523
  67. CHLORHEXIDINE GLUCONATE [Concomitant]
     Active Substance: CHLORHEXIDINE GLUCONATE
     Route: 061
     Dates: start: 20230524, end: 20230527
  68. CHLORHEXIDINE GLUCONATE [Concomitant]
     Active Substance: CHLORHEXIDINE GLUCONATE
     Route: 061
     Dates: start: 20230528, end: 20230528
  69. BETACORTEN OINTMENT [Concomitant]
     Dosage: 1 OTHER
     Route: 061
     Dates: start: 20230516, end: 20230521
  70. BETACORTEN OINTMENT [Concomitant]
     Dosage: 1 OTHER
     Route: 061
     Dates: start: 20230528, end: 20230604
  71. BETACORTEN OINTMENT [Concomitant]
     Dosage: 1 OTHER
     Route: 061
     Dates: start: 20230605, end: 20230611
  72. POLYCUTAN [Concomitant]
     Dosage: 1 OTHER
     Route: 061
     Dates: start: 20230522, end: 20230527
  73. POLYCUTAN [Concomitant]
     Dosage: 1 OTHER
     Route: 061
     Dates: start: 20230528, end: 20230528
  74. POLYCUTAN [Concomitant]
     Dosage: 1 OTHER
     Route: 061
     Dates: start: 20230521, end: 20230521
  75. OFLODEX [Concomitant]
     Route: 048
     Dates: start: 20230605, end: 20230609
  76. AUGMENTIN [Concomitant]
     Active Substance: AMOXICILLIN\CLAVULANATE POTASSIUM
     Route: 048
     Dates: start: 20231019, end: 20231023

REACTIONS (1)
  - Dermatitis [Not Recovered/Not Resolved]

NARRATIVE: CASE EVENT DATE: 20221130
